FAERS Safety Report 20020953 (Version 6)
Quarter: 2022Q1

REPORT INFORMATION
  Report Type: Report from Study
  Country: US (occurrence: US)
  Receive Date: 20211101
  Receipt Date: 20220321
  Transmission Date: 20220423
  Serious: No
  Sender: FDA-Public Use
  Company Number: US-NOVARTISTESTPH-NVSC2021US249508

PATIENT
  Age: 27 Year
  Sex: Female

DRUGS (1)
  1. COSENTYX [Suspect]
     Active Substance: SECUKINUMAB
     Indication: Psoriasis
     Dosage: 300 MG, EVERY WEEK FOR FIVE WEEKS AND THEN EVERY FOUR WEEKS
     Route: 058
     Dates: start: 20211024

REACTIONS (7)
  - Injection site bruising [Recovered/Resolved]
  - Arthralgia [Unknown]
  - Arthritis [Unknown]
  - Injection site haemorrhage [Recovered/Resolved]
  - Psoriasis [Unknown]
  - Drug ineffective [Unknown]
  - Inappropriate schedule of product administration [Unknown]

NARRATIVE: CASE EVENT DATE: 20211025
